FAERS Safety Report 14928983 (Version 8)
Quarter: 2018Q3

REPORT INFORMATION
  Report Type: Report from Study
  Country: US (occurrence: US)
  Receive Date: 20180523
  Receipt Date: 20180919
  Transmission Date: 20181010
  Serious: Yes (Other)
  Sender: FDA-Public Use
  Company Number: US-PFIZER INC-2018145990

PATIENT
  Age: 52 Year
  Sex: Female

DRUGS (4)
  1. IBRANCE [Suspect]
     Active Substance: PALBOCICLIB
     Dosage: 100 MG, DAILY
     Route: 048
     Dates: start: 20180327
  2. IBRANCE [Suspect]
     Active Substance: PALBOCICLIB
     Indication: BREAST CANCER
     Dosage: 125 MG, 1X/DAY
     Route: 048
     Dates: start: 20180327, end: 20180603
  3. IBRANCE [Suspect]
     Active Substance: PALBOCICLIB
     Dosage: 125 MG, CYCLIC (ONCE DAILY X 21 DAYS OFF X 7 DAYS)
     Route: 048
     Dates: start: 20180809, end: 20180831
  4. IBRANCE [Suspect]
     Active Substance: PALBOCICLIB
     Dosage: 100 MG, CYCLIC (DAILY ? 21 ON, 7 OFF)
     Route: 048
     Dates: start: 20180703, end: 2018

REACTIONS (23)
  - Neuropathy peripheral [Recovering/Resolving]
  - Pyrexia [Unknown]
  - Upper respiratory tract infection [Not Recovered/Not Resolved]
  - Burning sensation [Recovering/Resolving]
  - Decreased appetite [Not Recovered/Not Resolved]
  - Poor quality sleep [Recovered/Resolved]
  - Dyspnoea [Unknown]
  - Tumour marker increased [Unknown]
  - Pain in extremity [Not Recovered/Not Resolved]
  - Cystitis [Unknown]
  - Skin fissures [Unknown]
  - Fatigue [Unknown]
  - Dysgeusia [Not Recovered/Not Resolved]
  - Erythema [Recovered/Resolved]
  - Neoplasm progression [Unknown]
  - Rash pruritic [Recovered/Resolved]
  - Lower respiratory tract infection [Unknown]
  - Sinusitis [Unknown]
  - Condition aggravated [Not Recovered/Not Resolved]
  - Pleural effusion [Unknown]
  - Productive cough [Recovering/Resolving]
  - Nausea [Unknown]
  - Skin disorder [Recovered/Resolved]

NARRATIVE: CASE EVENT DATE: 2018
